FAERS Safety Report 12211117 (Version 2)
Quarter: 2017Q1

REPORT INFORMATION
  Report Type: Spontaneous
  Country: JP (occurrence: JP)
  Receive Date: 20160325
  Receipt Date: 20170217
  Transmission Date: 20170428
  Serious: Yes (Other)
  Sender: FDA-Public Use
  Company Number: JP-ABBVIE-16P-087-1591926-00

PATIENT
  Age: 48 Year
  Sex: Female

DRUGS (1)
  1. LEUPLIN [Suspect]
     Active Substance: LEUPROLIDE ACETATE
     Indication: ENDOMETRIOSIS
     Dosage: 3.75 MG, Q4WEEKS
     Route: 058
     Dates: start: 201602

REACTIONS (2)
  - Face oedema [Recovered/Resolved]
  - Tracheal obstruction [Recovered/Resolved]

NARRATIVE: CASE EVENT DATE: 20160311
